FAERS Safety Report 17574714 (Version 1)
Quarter: 2020Q1

REPORT INFORMATION
  Report Type: Spontaneous
  Country: GB (occurrence: GB)
  Receive Date: 20200324
  Receipt Date: 20200324
  Transmission Date: 20200409
  Serious: Yes (Other)
  Sender: FDA-Public Use
  Company Number: GB-ORION CORPORATION ORION PHARMA-20_00008727

PATIENT
  Age: 48 Year
  Sex: Male
  Weight: 95 kg

DRUGS (5)
  1. METHOTREXATE (TRADE NAME UNKNOWN) [Suspect]
     Active Substance: METHOTREXATE
     Indication: RHEUMATOID ARTHRITIS
     Dosage: STRENGTH:  2.5 MG
     Route: 048
  2. SULPHASALAZINE [Concomitant]
     Active Substance: SULFASALAZINE
     Indication: ILL-DEFINED DISORDER
     Route: 065
     Dates: start: 2007
  3. FOLIC ACID. [Concomitant]
     Active Substance: FOLIC ACID
     Indication: ILL-DEFINED DISORDER
     Route: 065
  4. HYDROXYCHLOROQUINE SULFATE. [Concomitant]
     Active Substance: HYDROXYCHLOROQUINE SULFATE
     Indication: ILL-DEFINED DISORDER
     Route: 065
     Dates: start: 2010
  5. METHOTREXATE (TRADE NAME UNKNOWN) [Suspect]
     Active Substance: METHOTREXATE
     Dosage: TEN TABLETS ONCE PER WEEK, 2.5 MG TABLETS
     Route: 048
     Dates: start: 2013

REACTIONS (5)
  - Product complaint [Unknown]
  - Product lot number issue [Unknown]
  - Abdominal pain upper [Not Recovered/Not Resolved]
  - Fatigue [Not Recovered/Not Resolved]
  - Chest pain [Unknown]

NARRATIVE: CASE EVENT DATE: 20191216
